FAERS Safety Report 4697981-8 (Version None)
Quarter: 2005Q2

REPORT INFORMATION
  Report Type: 
  Country: None (occurrence: None)
  Receive Date: 20050621
  Receipt Date: 20050614
  Transmission Date: 20051028
  Serious: Yes (Other)
  Sender: FDA-Public Use
  Company Number: 2005088462

PATIENT
  Age: 47 Year
  Sex: Female

DRUGS (3)
  1. TAHOR (ATORVASTATIN) [Suspect]
     Indication: HYPERCHOLESTEROLAEMIA
     Dosage: 10 MG (10 MG, DAILY), ORAL
     Route: 048
     Dates: start: 20050401, end: 20050501
  2. KERLONE [Concomitant]
  3. LEVOCETIRIZINE (LEVOCETIRIZINE) [Concomitant]

REACTIONS (2)
  - JOINT INJURY [None]
  - MUSCLE RUPTURE [None]
